FAERS Safety Report 18662921 (Version 11)
Quarter: 2024Q1

REPORT INFORMATION
  Report Type: Report from Study
  Country: US (occurrence: US)
  Receive Date: 20201224
  Receipt Date: 20240222
  Transmission Date: 20240410
  Serious: Yes (Hospitalization, Other)
  Sender: FDA-Public Use
  Company Number: US-SHIRE-US202023967

PATIENT
  Sex: Female

DRUGS (2)
  1. HUMAN IMMUNOGLOBULIN G\HYALURONIDASE RECOMBINANT HUMAN [Suspect]
     Active Substance: HUMAN IMMUNOGLOBULIN G\HYALURONIDASE (HUMAN RECOMBINANT)
     Indication: Primary immunodeficiency syndrome
     Dosage: UNK
     Route: 065
  2. HUMAN IMMUNOGLOBULIN G\HYALURONIDASE RECOMBINANT HUMAN [Suspect]
     Active Substance: HUMAN IMMUNOGLOBULIN G\HYALURONIDASE (HUMAN RECOMBINANT)
     Dosage: 20 GRAM, MONTHLY
     Route: 065

REACTIONS (21)
  - Facial nerve disorder [Unknown]
  - Acoustic neuroma [Unknown]
  - Breast cancer [Unknown]
  - Rectal haemorrhage [Unknown]
  - Impaired gastric emptying [Unknown]
  - Tympanic membrane perforation [Unknown]
  - Skin laceration [Unknown]
  - COVID-19 [Unknown]
  - Heart rate decreased [Unknown]
  - Varicose vein [Unknown]
  - Blood glucose decreased [Unknown]
  - Schwannoma [Unknown]
  - Thyroid disorder [Unknown]
  - Blood pressure decreased [Unknown]
  - Back disorder [Unknown]
  - Dysphagia [Unknown]
  - Gastrointestinal disorder [Unknown]
  - Gastrooesophageal reflux disease [Unknown]
  - Sleep apnoea syndrome [Unknown]
  - Ligament sprain [Unknown]
  - Gastritis [Unknown]
